FAERS Safety Report 5322642-1 (Version None)
Quarter: 2007Q2

REPORT INFORMATION
  Report Type: 
  Country: None (occurrence: None)
  Receive Date: 20070511
  Receipt Date: 20070503
  Transmission Date: 20071010
  Serious: Yes (Other)
  Sender: FDA-Public Use
  Company Number: US-JNJFOC-20070501033

PATIENT
  Age: 6 Month
  Sex: Female
  Weight: 9.98 kg

DRUGS (3)
  1. TYLENOL (CAPLET) [Suspect]
  2. TYLENOL (CAPLET) [Suspect]
     Indication: TEETHING
  3. INFANTS MYLICON [Suspect]
     Indication: FLATULENCE

REACTIONS (1)
  - ASTHMA [None]
